FAERS Safety Report 20406772 (Version 2)
Quarter: 2022Q1

REPORT INFORMATION
  Report Type: Report from Study
  Country: GB (occurrence: GB)
  Receive Date: 20220131
  Receipt Date: 20220322
  Transmission Date: 20220423
  Serious: Yes (Other)
  Sender: FDA-Public Use
  Company Number: GB-SAMSUNG BIOEPIS-SB-2022-02264

PATIENT
  Age: 53 Year
  Sex: Female

DRUGS (4)
  1. IMRALDI [Suspect]
     Active Substance: ADALIMUMAB
     Indication: Hidradenitis
     Dosage: DAY ONE
     Route: 058
     Dates: start: 20211222
  2. IMRALDI [Suspect]
     Active Substance: ADALIMUMAB
     Dosage: DAY 15
     Route: 058
  3. IMRALDI [Suspect]
     Active Substance: ADALIMUMAB
     Dosage: DAY 29
     Route: 058
  4. IMRALDI [Suspect]
     Active Substance: ADALIMUMAB
     Route: 058

REACTIONS (4)
  - COVID-19 [Recovered/Resolved]
  - Tooth abscess [Recovered/Resolved]
  - Abscess [Not Recovered/Not Resolved]
  - Herpes zoster [Recovered/Resolved]
